FAERS Safety Report 5521889-9 (Version None)
Quarter: 2007Q4

REPORT INFORMATION
  Report Type: 
  Country: None (occurrence: None)
  Receive Date: 20071115
  Receipt Date: 20071101
  Transmission Date: 20080405
  Serious: Yes (Other)
  Sender: FDA-Public Use
  Company Number: S07-SWI-05567-01

PATIENT
  Age: 54 Year
  Sex: Female
  Weight: 19.5047 kg

DRUGS (4)
  1. ESCITALOPRAM [Suspect]
     Indication: DEPRESSION
     Dosage: 10 MG BID PO
     Route: 048
     Dates: start: 20070504, end: 20070629
  2. RITALIN [Concomitant]
  3. CLORAZEPATE DIPOTASSIUM [Concomitant]
  4. MELATONIN [Concomitant]

REACTIONS (11)
  - BRUXISM [None]
  - DEHYDRATION [None]
  - DIZZINESS [None]
  - HEART RATE DECREASED [None]
  - NAUSEA [None]
  - ORTHOSTATIC HYPOTENSION [None]
  - PAROSMIA [None]
  - RESPIRATORY RATE DECREASED [None]
  - SLEEP DISORDER [None]
  - VISION BLURRED [None]
  - VOMITING [None]
